FAERS Safety Report 18724489 (Version 1)
Quarter: 2021Q1

REPORT INFORMATION
  Report Type: Spontaneous
  Country: US (occurrence: US)
  Receive Date: 20210111
  Receipt Date: 20210111
  Transmission Date: 20210419
  Serious: Yes (Hospitalization, Other)
  Sender: FDA-Public Use
  Company Number: None

PATIENT
  Age: 87 Year
  Sex: Female
  Weight: 68 kg

DRUGS (1)
  1. CASIRIVIMAB?IMDEVIMAB [Suspect]
     Active Substance: CASIRIVIMAB\IMDEVIMAB
     Indication: COVID-19
     Dosage: ?          OTHER FREQUENCY:ONCE;?
     Route: 042
     Dates: start: 20210104, end: 20210104

REACTIONS (8)
  - Hypoxia [None]
  - Troponin increased [None]
  - Chest pain [None]
  - Chills [None]
  - Lip pain [None]
  - Glossodynia [None]
  - Pain [None]
  - Oxygen saturation decreased [None]

NARRATIVE: CASE EVENT DATE: 20210104
